FAERS Safety Report 4774973-1 (Version None)
Quarter: 2005Q3

REPORT INFORMATION
  Report Type: 
  Country: None (occurrence: None)
  Receive Date: 20050921
  Receipt Date: 20050912
  Transmission Date: 20060218
  Serious: Yes (Hospitalization)
  Sender: FDA-Public Use
  Company Number: US-JNJFOC-20050903896

PATIENT
  Sex: Female

DRUGS (6)
  1. DURAGESIC-100 [Suspect]
     Route: 062
     Dates: start: 20030101
  2. DURAGESIC-100 [Suspect]
     Route: 062
     Dates: start: 20030101
  3. ROBAXIN [Concomitant]
     Dosage: 3 TO 4 TABLETS AS NECESSARY PER DAY
     Route: 048
  4. LORTAB [Concomitant]
     Route: 048
  5. LORTAB [Concomitant]
     Indication: PAIN
     Dosage: MAY TAKE UP TO 6 TABLETS IN 24 HOURS
     Route: 048
  6. IBUPROFEN [Concomitant]
     Indication: PAIN
     Dosage: 3-4 TABLETS IN 24 HOURS AS NEEDED
     Route: 048

REACTIONS (2)
  - INTERVERTEBRAL DISC PROTRUSION [None]
  - THERAPEUTIC RESPONSE DECREASED [None]
